FAERS Safety Report 4801150-8 (Version None)
Quarter: 2005Q4

REPORT INFORMATION
  Report Type: 
  Country: None (occurrence: None)
  Receive Date: 20051011
  Receipt Date: 20050929
  Transmission Date: 20060501
  Serious: Yes (Other)
  Sender: FDA-Public Use
  Company Number: HQWYE802203OCT05

PATIENT
  Age: 40 Year
  Sex: Male

DRUGS (1)
  1. VENLAFAXINE HCL [Suspect]
     Dosage: ^2X50MG^

REACTIONS (2)
  - CIRCULATORY COLLAPSE [None]
  - ORTHOSTATIC HYPOTENSION [None]
